FAERS Safety Report 25485105 (Version 1)
Quarter: 2025Q2

REPORT INFORMATION
  Report Type: Spontaneous
  Country: US (occurrence: None)
  Receive Date: 20250626
  Receipt Date: 20250626
  Transmission Date: 20250716
  Serious: No
  Sender: INCYTE
  Company Number: US-INCYTE CORPORATION-2025IN006656

PATIENT

DRUGS (4)
  1. JAKAFI [Suspect]
     Active Substance: RUXOLITINIB
     Indication: Polycythaemia vera
     Dosage: 15 MILLIGRAM, QD
  2. ASPIRIN [Concomitant]
     Active Substance: ASPIRIN
     Indication: Product used for unknown indication
     Route: 065
  3. ORAMAGICRX [Concomitant]
     Indication: Product used for unknown indication
     Route: 065
  4. VALSARTAN [Concomitant]
     Active Substance: VALSARTAN
     Route: 065

REACTIONS (2)
  - Toothache [Not Recovered/Not Resolved]
  - Fatigue [Not Recovered/Not Resolved]
